FAERS Safety Report 7349242-6 (Version None)
Quarter: 2011Q1

REPORT INFORMATION
  Report Type: 
  Country: None (occurrence: None)
  Receive Date: 20110303
  Receipt Date: 20110216
  Transmission Date: 20110831
  Serious: Yes (Other)
  Sender: FDA-Public Use
  Company Number: 2011US0055

PATIENT

DRUGS (3)
  1. CORTICOSTEROIDS (CORTICOSTEROIDS) [Concomitant]
  2. CYCLOSPORINE [Concomitant]
  3. ANAKINRA  (ANAKINRA) [Suspect]
     Indication: JUVENILE ARTHRITIS
     Dosage: 1,6 MG/KG, 1 IN 1 D

REACTIONS (1)
  - HISTIOCYTOSIS HAEMATOPHAGIC [None]
